FAERS Safety Report 9666273 (Version 1)
Quarter: 2013Q4

REPORT INFORMATION
  Report Type: Spontaneous
  Country: US (occurrence: None)
  Receive Date: 20131101
  Receipt Date: 20131101
  Transmission Date: 20140711
  Serious: Yes (Other)
  Sender: FDA-Public Use
  Company Number: None

PATIENT
  Age: 67 Year
  Sex: Female

DRUGS (14)
  1. RECLAST [Suspect]
     Indication: CHEMOTHERAPY
     Dates: end: 20130926
  2. FOLIC ACID [Concomitant]
  3. HYDROCORTISONE [Concomitant]
  4. LETROZOLE [Concomitant]
  5. LEVOFLOXACIN [Concomitant]
  6. LEVOTHYROXINE [Concomitant]
  7. LIDOCAINE [Concomitant]
  8. LISINOPRIL [Concomitant]
  9. METHYLPHENIDATE [Concomitant]
  10. MULTIVITAMIN [Concomitant]
  11. MULTIVITAMIN SUPER B COMPLEX [Concomitant]
  12. MULTIVITAMIN PRENATAL [Concomitant]
  13. OMEGA-3 POLYUNSATURATE FATTY ACIDS [Concomitant]
  14. OXYCODONE [Concomitant]

REACTIONS (1)
  - Osteonecrosis of jaw [None]
